FAERS Safety Report 5880077-7 (Version None)
Quarter: 2008Q3

REPORT INFORMATION
  Report Type: 
  Country: None (occurrence: None)
  Receive Date: 20080912
  Receipt Date: 20080902
  Transmission Date: 20090109
  Serious: Yes (Hospitalization)
  Sender: FDA-Public Use
  Company Number: DE-PFIZER INC-2008073907

PATIENT
  Sex: Female

DRUGS (5)
  1. DOXORUBICIN HCL [Suspect]
     Indication: BREAST CANCER
     Dosage: DAILY DOSE:100MG
     Route: 042
     Dates: start: 20080408, end: 20080722
  2. DOCETAXEL [Suspect]
     Indication: BREAST CANCER
     Dosage: DAILY DOSE:150MG
     Route: 042
     Dates: start: 20080408, end: 20080722
  3. CYCLOPHOSPHAMIDE [Suspect]
     Indication: BREAST CANCER
     Dosage: DAILY DOSE:1000MG
     Route: 042
     Dates: start: 20080408, end: 20080722
  4. ATACAND [Concomitant]
  5. METFORMIN HCL [Concomitant]

REACTIONS (1)
  - TENDONITIS [None]
